FAERS Safety Report 9531316 (Version 2)
Quarter: 2013Q4

REPORT INFORMATION
  Report Type: Spontaneous
  Country: US (occurrence: US)
  Receive Date: 20130918
  Receipt Date: 20131115
  Transmission Date: 20140711
  Serious: Yes (Other)
  Sender: FDA-Public Use
  Company Number: US-BAYER-2013-112000

PATIENT
  Age: 62 Year
  Sex: Female
  Weight: 83.9 kg

DRUGS (8)
  1. AVELOX [Suspect]
     Indication: CHRONIC SINUSITIS
     Dosage: 400 MG, QD
     Route: 048
     Dates: start: 20130823, end: 20130902
  2. FLONASE [Concomitant]
     Indication: NASAL POLYPS
     Dosage: 50 MCG 2 SPRAY EACH SIDE TWICE DAILY
  3. IBUPROFEN [Concomitant]
     Dosage: 800 MG, PRN
  4. METOPROLOL [Concomitant]
     Indication: HYPERTENSION
     Dosage: 5 MG, QD
  5. PROVENTIL [Concomitant]
     Dosage: 108 MCG/ACT PRN
  6. QVAR [Concomitant]
     Dosage: 80 MCG/ACT
  7. SIMVASTATIN [Concomitant]
     Dosage: 40 MG, QD
  8. WELLBUTRIN XL [Concomitant]
     Dosage: 300 MG, QD

REACTIONS (4)
  - Retinal detachment [Unknown]
  - Vision blurred [Unknown]
  - Abnormal sensation in eye [Unknown]
  - Visual impairment [Unknown]
